FAERS Safety Report 23351668 (Version 3)
Quarter: 2024Q4

REPORT INFORMATION
  Report Type: Report from Study
  Country: CA (occurrence: CA)
  Receive Date: 20231229
  Receipt Date: 20241116
  Transmission Date: 20250114
  Serious: Yes (Other)
  Sender: BOEHRINGER INGELHEIM
  Company Number: CA-BoehringerIngelheim-2023-BI-275084

PATIENT
  Age: 72 Year
  Sex: Female

DRUGS (3)
  1. OFEV [Suspect]
     Active Substance: NINTEDANIB
     Indication: Idiopathic pulmonary fibrosis
     Route: 048
     Dates: start: 20231123
  2. PREDNISONE [Concomitant]
     Active Substance: PREDNISONE
     Indication: Sinus disorder
  3. MYCOPHENOLIC ACID [Concomitant]
     Active Substance: MYCOPHENOLIC ACID

REACTIONS (5)
  - Dermatitis bullous [Not Recovered/Not Resolved]
  - Illness [Unknown]
  - Diarrhoea [Not Recovered/Not Resolved]
  - Chapped lips [Not Recovered/Not Resolved]
  - Skin weeping [Not Recovered/Not Resolved]
